FAERS Safety Report 5069885-2 (Version None)
Quarter: 2006Q3

REPORT INFORMATION
  Report Type: 
  Country: None (occurrence: None)
  Receive Date: 20060803
  Receipt Date: 20060724
  Transmission Date: 20061208
  Serious: Yes (Death)
  Sender: FDA-Public Use
  Company Number: GB-BRISTOL-MYERS SQUIBB COMPANY-13451943

PATIENT
  Age: 45 Year
  Sex: Female

DRUGS (7)
  1. ABILIFY [Suspect]
     Indication: SCHIZOPHRENIA
     Dates: start: 20050201
  2. CITALOPRAM HYDROBROMIDE [Suspect]
     Indication: DEPRESSION
     Dates: start: 20031001
  3. KEMADRIN [Suspect]
     Dates: start: 20031001
  4. KEPPRA [Suspect]
     Indication: EPILEPSY
     Dates: start: 20030501
  5. TEGRETOL [Suspect]
     Indication: EPILEPSY
     Dates: start: 19920101
  6. FEMODENE [Concomitant]
     Indication: CONTRACEPTION
     Dates: start: 20060401
  7. SOLIAN [Concomitant]
     Dates: start: 20060101

REACTIONS (3)
  - DEATH [None]
  - POOR PERSONAL HYGIENE [None]
  - WEIGHT INCREASED [None]
